FAERS Safety Report 4663913-1 (Version None)
Quarter: 2005Q2

REPORT INFORMATION
  Report Type: 
  Country: None (occurrence: None)
  Receive Date: 20050511
  Receipt Date: 20050307
  Transmission Date: 20051028
  Serious: Yes (Life-Threatening)
  Sender: FDA-Public Use
  Company Number: 386465

PATIENT
  Age: 55 Year
  Sex: Female
  Weight: 71.7 kg

DRUGS (2)
  1. PEGASYS [Suspect]
     Indication: HEPATITIS C
     Dosage: 180 MCG 1 PER WEEK SUBCUTANEOUS
     Route: 058
     Dates: start: 20040707, end: 20041028
  2. COPEGUS [Suspect]
     Indication: HEPATITIS C
     Dosage: 1000 MG DAILY ORAL
     Route: 048
     Dates: start: 20040707, end: 20041028

REACTIONS (9)
  - ALOPECIA [None]
  - ASTHENIA [None]
  - DYSPEPSIA [None]
  - EYELID OEDEMA [None]
  - PHARYNGOLARYNGEAL PAIN [None]
  - RED BLOOD CELL COUNT DECREASED [None]
  - SINUSITIS [None]
  - SWELLING FACE [None]
  - WHITE BLOOD CELL COUNT DECREASED [None]
